FAERS Safety Report 24780319 (Version 2)
Quarter: 2025Q1

REPORT INFORMATION
  Report Type: Report from Study
  Country: US (occurrence: US)
  Receive Date: 20241227
  Receipt Date: 20250204
  Transmission Date: 20250408
  Serious: Yes (Hospitalization, Other)
  Sender: ACADIA PHARMACEUTICALS
  Company Number: US-ACADIA PHARMACEUTICALS INC.-ACA-2024-PIM-008363

PATIENT
  Age: 81 Year
  Sex: Female

DRUGS (11)
  1. NUPLAZID [Suspect]
     Active Substance: PIMAVANSERIN TARTRATE
     Indication: Parkinson^s disease
     Dosage: 34 MILLIGRAM, QD
     Route: 048
     Dates: start: 20230602
  2. SEROQUEL [Concomitant]
     Active Substance: QUETIAPINE FUMARATE
  3. MIDODRINE [Concomitant]
     Active Substance: MIDODRINE
  4. ADLARITY [Concomitant]
     Active Substance: DONEPEZIL HYDROCHLORIDE
  5. ACETAMINOPHEN [Concomitant]
     Active Substance: ACETAMINOPHEN
  6. ESCITALOPRAM [Concomitant]
     Active Substance: ESCITALOPRAM OXALATE
  7. MINERALS\VITAMINS [Concomitant]
     Active Substance: MINERALS\VITAMINS
  8. RYTARY [Concomitant]
     Active Substance: CARBIDOPA\LEVODOPA
  9. DIVALPROEX SODIUM [Concomitant]
     Active Substance: DIVALPROEX SODIUM
  10. DUOPA [Concomitant]
     Active Substance: CARBIDOPA\LEVODOPA
  11. NAMENDA [Concomitant]
     Active Substance: MEMANTINE HYDROCHLORIDE

REACTIONS (2)
  - Bacterial infection [Not Recovered/Not Resolved]
  - Hallucination [Recovered/Resolved]

NARRATIVE: CASE EVENT DATE: 20241213
